FAERS Safety Report 9728301 (Version 1)
Quarter: 2013Q4

REPORT INFORMATION
  Report Type: Spontaneous
  Country: US (occurrence: None)
  Receive Date: 20131203
  Receipt Date: 20131203
  Transmission Date: 20140711
  Serious: No
  Sender: FDA-Public Use
  Company Number: None

PATIENT
  Sex: Female

DRUGS (1)
  1. ANMIDEX [Suspect]
     Route: 048
     Dates: start: 20131015, end: 20131105

REACTIONS (4)
  - Chest pain [None]
  - Cough [None]
  - Swollen tongue [None]
  - Pharyngeal disorder [None]
